FAERS Safety Report 8325412-5 (Version None)
Quarter: 2012Q2

REPORT INFORMATION
  Report Type: 
  Country: None (occurrence: None)
  Receive Date: 20120501
  Receipt Date: 20120420
  Transmission Date: 20120825
  Serious: Yes (Other)
  Sender: FDA-Public Use
  Company Number: DE-FRI-1000029630

PATIENT
  Age: 66 Year
  Sex: Female
  Weight: 95 kg

DRUGS (10)
  1. ASPIRIN [Concomitant]
  2. RAMIPRIL [Concomitant]
     Dosage: 1 DOSAGE FORMS
  3. SPIRIVA [Concomitant]
  4. VERAPAMIL [Concomitant]
     Indication: AORTIC VALVE STENOSIS
     Dosage: 2 DOSAGE FORMS
  5. ROFLUMILAST [Suspect]
     Indication: CHRONIC OBSTRUCTIVE PULMONARY DISEASE
     Route: 048
     Dates: start: 20110221
  6. LEVOTHYROXINE SODIUM [Concomitant]
  7. ALBUTEROL [Concomitant]
  8. FORMATRIS [Concomitant]
  9. PREDNISOLONE [Concomitant]
     Dosage: 1 DOSAGE FORMS
  10. VALDOXAN [Concomitant]

REACTIONS (2)
  - PNEUMONIA [None]
  - BRONCHITIS [None]
